FAERS Safety Report 21335443 (Version 1)
Quarter: 2022Q3

REPORT INFORMATION
  Report Type: Spontaneous
  Country: FR (occurrence: FR)
  Receive Date: 20220915
  Receipt Date: 20220915
  Transmission Date: 20221027
  Serious: Yes (Hospitalization)
  Sender: FDA-Public Use
  Company Number: None

PATIENT
  Age: 38 Year
  Sex: Male
  Weight: 92 kg

DRUGS (4)
  1. FLUDARABINE PHOSPHATE [Suspect]
     Active Substance: FLUDARABINE PHOSPHATE
     Indication: Bone marrow conditioning regimen
     Dosage: UNIT DOSE :  58 MG, FREQUENCY TIME : 1 DAY ,   DURATION : 2 DAYS
     Route: 065
     Dates: start: 20220210, end: 20220212
  2. CYCLOPHOSPHAMIDE [Suspect]
     Active Substance: CYCLOPHOSPHAMIDE
     Indication: Bone marrow conditioning regimen
     Dosage: UNIT DOSE : 970 MG, FREQUENCY TIME :1 DAY ,   DURATION : 2 DAYS
     Route: 065
     Dates: start: 20220210, end: 20220212
  3. YESCARTA [Suspect]
     Active Substance: AXICABTAGENE CILOLEUCEL
     Indication: Diffuse large B-cell lymphoma
     Dosage: UNIT DOSE : 1 DOSAGE FORM , DURATION : 1 DAYS
     Route: 065
     Dates: start: 20220215, end: 20220215
  4. MESNA [Concomitant]
     Active Substance: MESNA
     Indication: Product used for unknown indication

REACTIONS (1)
  - Cytokine release syndrome [Recovered/Resolved]

NARRATIVE: CASE EVENT DATE: 20220216
